FAERS Safety Report 25929571 (Version 1)
Quarter: 2025Q4

REPORT INFORMATION
  Report Type: Spontaneous
  Country: GB (occurrence: GB)
  Receive Date: 20251016
  Receipt Date: 20251016
  Transmission Date: 20260118
  Serious: Yes (Other)
  Sender: ANI
  Company Number: GB-ANIPHARMA-2025-UK-000144

PATIENT
  Sex: Female

DRUGS (17)
  1. ANASTROZOLE [Suspect]
     Active Substance: ANASTROZOLE
     Indication: Product used for unknown indication
     Route: 048
  2. MIRTAZAPINE [Concomitant]
     Active Substance: MIRTAZAPINE
  3. ACETAMINOPHEN [Concomitant]
     Active Substance: ACETAMINOPHEN
  4. PREGABALIN [Concomitant]
     Active Substance: PREGABALIN
  5. SENNA [Concomitant]
     Active Substance: SENNOSIDES
  6. TOUJEO [Concomitant]
     Active Substance: INSULIN GLARGINE
  7. MORPHINE SULFATE [Concomitant]
     Active Substance: MORPHINE SULFATE
  8. ZOPICLONE [Concomitant]
     Active Substance: ZOPICLONE
  9. LANSOPRAZOLE [Concomitant]
     Active Substance: LANSOPRAZOLE
  10. FULVESTRANT [Suspect]
     Active Substance: FULVESTRANT
     Route: 030
  11. ROSUVASTATIN [Suspect]
     Active Substance: ROSUVASTATIN
     Route: 048
  12. DAPAGLIFLOZIN [Suspect]
     Active Substance: DAPAGLIFLOZIN
     Route: 048
  13. DIAZEPAM [Concomitant]
     Active Substance: DIAZEPAM
  14. POLYETHYLENE GLYCOL 3350\POTASSIUM CHLORIDE\SODIUM BICARBONATE\SODIUM [Concomitant]
     Active Substance: POLYETHYLENE GLYCOL 3350\POTASSIUM CHLORIDE\SODIUM BICARBONATE\SODIUM CHLORIDE
  15. MORPHINE SULFATE [Concomitant]
     Active Substance: MORPHINE SULFATE
  16. FENOFIBRATE [Concomitant]
     Active Substance: FENOFIBRATE
  17. FOLIC ACID [Concomitant]
     Active Substance: FOLIC ACID

REACTIONS (21)
  - Chest wall mass [Unknown]
  - Platelet count decreased [Unknown]
  - Blood creatine abnormal [Unknown]
  - Glomerular filtration rate increased [Unknown]
  - Blood bilirubin abnormal [Unknown]
  - Alanine aminotransferase abnormal [Unknown]
  - Blood alkaline phosphatase abnormal [Unknown]
  - Blood albumin abnormal [Unknown]
  - Blood calcium abnormal [Unknown]
  - Musculoskeletal toxicity [Unknown]
  - Chest pain [Unknown]
  - Pulmonary mass [Unknown]
  - Dyspnoea [Unknown]
  - Arthralgia [Unknown]
  - Toxicity to various agents [Unknown]
  - Pain [Unknown]
  - Lymphadenopathy [Unknown]
  - Scan abnormal [Unknown]
  - Haemoglobin abnormal [Unknown]
  - White blood cell count abnormal [Unknown]
  - Neutrophil count abnormal [Unknown]
